FAERS Safety Report 10236950 (Version 2)
Quarter: 2014Q2

REPORT INFORMATION
  Report Type: Spontaneous
  Country: JP (occurrence: JP)
  Receive Date: 20140613
  Receipt Date: 20140619
  Transmission Date: 20141212
  Serious: Yes (Hospitalization)
  Sender: FDA-Public Use
  Company Number: JP-B.I. PHARMACEUTICALS,INC./RIDGEFIELD-2014-BI-26715NB

PATIENT
  Age: 64 Year
  Sex: Female

DRUGS (4)
  1. CATAPRES [Suspect]
     Indication: HYPERTENSION
     Dosage: 150 MG
     Route: 065
  2. AMLODIPINE [Suspect]
     Indication: HYPERTENSION
     Dosage: 5 MG
     Route: 048
  3. TENELIA [Suspect]
     Indication: DIABETES MELLITUS
     Dosage: 20 MG
     Route: 048
  4. CRESTOR [Suspect]
     Indication: DYSLIPIDAEMIA
     Dosage: 2.5 MG
     Route: 048

REACTIONS (2)
  - Hypoaesthesia [Not Recovered/Not Resolved]
  - Diabetes mellitus inadequate control [Unknown]
